FAERS Safety Report 18911793 (Version 2)
Quarter: 2021Q1

REPORT INFORMATION
  Report Type: Spontaneous
  Country: AT (occurrence: AT)
  Receive Date: 20210218
  Receipt Date: 20210308
  Transmission Date: 20210420
  Serious: Yes (Death, Life-Threatening)
  Sender: FDA-Public Use
  Company Number: NVSC2021AT039012

PATIENT
  Age: 55 Year
  Sex: Male

DRUGS (1)
  1. FLUDARABINE PHOSPHATE. [Suspect]
     Active Substance: FLUDARABINE PHOSPHATE
     Indication: CHRONIC LYMPHOCYTIC LEUKAEMIA
     Dosage: 25 MG/M2, QD (FOR 5 DAYS EVERY 4 WEEKS)
     Route: 065

REACTIONS (3)
  - Neurological symptom [Fatal]
  - Therapy non-responder [Unknown]
  - Progressive multifocal leukoencephalopathy [Fatal]
